FAERS Safety Report 8942230 (Version 1)
Quarter: 2012Q4

REPORT INFORMATION
  Report Type: Spontaneous
  Country: US (occurrence: None)
  Receive Date: 20121129
  Receipt Date: 20121129
  Transmission Date: 20130627
  Serious: Yes (Other)
  Sender: FDA-Public Use
  Company Number: None

PATIENT
  Age: 41 Year
  Sex: Female

DRUGS (1)
  1. TYKERB [Suspect]
     Indication: BREAST CANCER
     Dosage: 750mg QD PO
     Route: 048
     Dates: start: 20121028, end: 20121114

REACTIONS (3)
  - Diarrhoea [None]
  - Nausea [None]
  - Vomiting [None]
